FAERS Safety Report 4728504-2 (Version None)
Quarter: 2005Q3

REPORT INFORMATION
  Report Type: 
  Country: None (occurrence: None)
  Receive Date: 20050729
  Receipt Date: 20050112
  Transmission Date: 20060218
  Serious: No
  Sender: FDA-Public Use
  Company Number: US-GLAXOSMITHKLINE-A0540437A

PATIENT
  Age: 77 Year
  Sex: Female

DRUGS (4)
  1. ZANTAC [Suspect]
     Route: 048
  2. KEFLEX [Concomitant]
  3. CHLOR-TRIMETON [Concomitant]
  4. ACTIFED [Concomitant]

REACTIONS (1)
  - WEIGHT INCREASED [None]
